FAERS Safety Report 6616363-2 (Version None)
Quarter: 2010Q1

REPORT INFORMATION
  Report Type: 
  Country: None (occurrence: None)
  Receive Date: 20100305
  Receipt Date: 20100223
  Transmission Date: 20100710
  Serious: Yes (Hospitalization, Other)
  Sender: FDA-Public Use
  Company Number: KR-JNJFOC-20100210329

PATIENT
  Age: 19 Year
  Sex: Male

DRUGS (2)
  1. INVEGA [Suspect]
     Indication: DRUG USE FOR UNKNOWN INDICATION
     Route: 048
  2. INVEGA [Suspect]
     Route: 048

REACTIONS (4)
  - DEPRESSED MOOD [None]
  - EXTRAPYRAMIDAL DISORDER [None]
  - MENTAL STATUS CHANGES [None]
  - SUICIDAL IDEATION [None]
